FAERS Safety Report 22815820 (Version 3)
Quarter: 2023Q4

REPORT INFORMATION
  Report Type: Report from Study
  Country: BR (occurrence: BR)
  Receive Date: 20230811
  Receipt Date: 20231128
  Transmission Date: 20240110
  Serious: Yes (Other)
  Sender: FDA-Public Use
  Company Number: BR-002147023-NVSC2023BR165142

PATIENT
  Sex: Female

DRUGS (8)
  1. KISQALI [Suspect]
     Active Substance: RIBOCICLIB
     Indication: Breast cancer metastatic
     Dosage: UNK
     Route: 065
     Dates: start: 202305
  2. KISQALI [Suspect]
     Active Substance: RIBOCICLIB
     Dosage: 200 MG
     Route: 065
  3. KISQALI [Suspect]
     Active Substance: RIBOCICLIB
     Dosage: UNK
     Route: 065
  4. ANASTROZOLE [Suspect]
     Active Substance: ANASTROZOLE
     Indication: Product used for unknown indication
     Dosage: 1 MG
     Route: 065
  5. ANASTROZOLE [Suspect]
     Active Substance: ANASTROZOLE
     Dosage: UNK
     Route: 065
  6. FASLODEX [Suspect]
     Active Substance: FULVESTRANT
     Indication: Product used for unknown indication
     Dosage: UNK
     Route: 065
  7. XGEVA [Suspect]
     Active Substance: DENOSUMAB
     Indication: Product used for unknown indication
     Dosage: UNK UNK, QMO (3 MONTHS)
     Route: 065
  8. AN YA [Concomitant]
     Indication: Product used for unknown indication
     Dosage: 1 MG
     Route: 065

REACTIONS (13)
  - Metastases to bone [Unknown]
  - White blood cell count decreased [Unknown]
  - Nocturia [Not Recovered/Not Resolved]
  - Dental discomfort [Unknown]
  - Diarrhoea [Recovered/Resolved]
  - Skin irritation [Unknown]
  - Erythema [Unknown]
  - Dry skin [Unknown]
  - Hypersensitivity [Unknown]
  - Irritability [Unknown]
  - Depressed mood [Unknown]
  - Drug hypersensitivity [Recovered/Resolved]
  - Blood calcium decreased [Unknown]

NARRATIVE: CASE EVENT DATE: 20230101
